FAERS Safety Report 24154406 (Version 1)
Quarter: 2024Q3

REPORT INFORMATION
  Report Type: Spontaneous
  Country: ZA (occurrence: None)
  Receive Date: 20240731
  Receipt Date: 20240731
  Transmission Date: 20241017
  Serious: Yes (Hospitalization)
  Sender: ASTRAZENECA
  Company Number: 2024A168809

PATIENT
  Age: 69 Year
  Sex: Female

DRUGS (6)
  1. DAPAGLIFLOZIN PROPANEDIOL [Suspect]
     Active Substance: DAPAGLIFLOZIN PROPANEDIOL
     Indication: Type 2 diabetes mellitus
     Dosage: UNKNOWN
     Route: 048
  2. SODIUM CHLORIDE [Concomitant]
     Active Substance: SODIUM CHLORIDE
     Dosage: UNKNOWN
     Route: 048
  3. CARBOPLATIN [Concomitant]
     Active Substance: CARBOPLATIN
     Indication: Neoplasm malignant
     Dosage: UNKNOWN
     Route: 041
  4. AMLOC [Concomitant]
     Indication: Hypertension
     Dosage: UNKNOWN
     Route: 048
  5. LIPOGEN [Concomitant]
     Indication: Blood cholesterol
     Dosage: UNKNOWN
     Route: 048
  6. JANUMET [Concomitant]
     Active Substance: METFORMIN HYDROCHLORIDE\SITAGLIPTIN PHOSPHATE
     Indication: Type 2 diabetes mellitus
     Dosage: UNKNOWN
     Route: 048

REACTIONS (2)
  - Neoplasm malignant [Unknown]
  - Illness [Unknown]
